FAERS Safety Report 7732863-6 (Version None)
Quarter: 2011Q3

REPORT INFORMATION
  Report Type: 
  Country: None (occurrence: None)
  Receive Date: 20110907
  Receipt Date: 20110831
  Transmission Date: 20111222
  Serious: Yes (Hospitalization, Disabling, Other)
  Sender: FDA-Public Use
  Company Number: PHHY2011GB77604

PATIENT
  Age: 15 Year
  Weight: 62.5 kg

DRUGS (1)
  1. MEROPENEM [Suspect]
     Indication: PNEUMONIA
     Dosage: 1 G, UNK
     Route: 042
     Dates: start: 20110728, end: 20110801

REACTIONS (2)
  - STATUS EPILEPTICUS [None]
  - EPILEPSY [None]
